FAERS Safety Report 5455742-6 (Version None)
Quarter: 2007Q3

REPORT INFORMATION
  Report Type: 
  Country: None (occurrence: None)
  Receive Date: 20070917
  Receipt Date: 20070917
  Transmission Date: 20080115
  Serious: Yes (Hospitalization)
  Sender: FDA-Public Use
  Company Number: None

PATIENT
  Age: 80 Year
  Sex: Male

DRUGS (1)
  1. ACETAMINOPHEN AND CODEINE PHOSPHATE [Suspect]
     Indication: PAIN
     Dosage: 1-2TAB PRN PO
     Route: 048
     Dates: start: 20070625, end: 20070626

REACTIONS (6)
  - LOSS OF CONSCIOUSNESS [None]
  - MEDICATION ERROR [None]
  - NAUSEA [None]
  - SYNCOPE [None]
  - VISION BLURRED [None]
  - VOMITING [None]
